FAERS Safety Report 6016388-4 (Version None)
Quarter: 2008Q4

REPORT INFORMATION
  Report Type: 
  Country: None (occurrence: None)
  Receive Date: 20081222
  Receipt Date: 20081211
  Transmission Date: 20090506
  Serious: Yes (Other)
  Sender: FDA-Public Use
  Company Number: US-WYE-H07161708

PATIENT
  Sex: Female
  Weight: 52.2 kg

DRUGS (10)
  1. EFFEXOR [Suspect]
     Indication: DEPRESSION
     Dates: end: 20081101
  2. EFFEXOR [Suspect]
     Dates: start: 20081101, end: 20081101
  3. EFFEXOR [Suspect]
     Dates: start: 20081101
  4. CELEBREX [Suspect]
     Indication: ARTHRITIS
     Dates: start: 20081001, end: 20081101
  5. VALIUM [Suspect]
  6. DEPAKOTE [Suspect]
     Dosage: UNKNOWN (2 IN 1 DAY)
  7. BUSPAR [Suspect]
     Dosage: UNKNOWN
  8. CHANTIX [Suspect]
     Indication: SMOKING CESSATION THERAPY
     Dates: start: 20081101, end: 20081101
  9. CHANTIX [Suspect]
     Dates: start: 20081101
  10. ADDERALL 10 [Suspect]
     Indication: ATTENTION DEFICIT/HYPERACTIVITY DISORDER
     Dosage: UNKNOWN

REACTIONS (8)
  - AGITATION [None]
  - CHEST DISCOMFORT [None]
  - CONDITION AGGRAVATED [None]
  - DEPRESSION [None]
  - DYSPNOEA [None]
  - FEELING ABNORMAL [None]
  - NAUSEA [None]
  - SUICIDAL IDEATION [None]
